FAERS Safety Report 16627695 (Version 1)
Quarter: 2019Q3

REPORT INFORMATION
  Report Type: Report from Study
  Country: BR (occurrence: BR)
  Receive Date: 20190724
  Receipt Date: 20190724
  Transmission Date: 20191004
  Serious: Yes (Other)
  Sender: FDA-Public Use
  Company Number: BR-JNJFOC-20190321475

PATIENT
  Age: 6 Decade
  Sex: Male

DRUGS (1)
  1. SIMPONI [Suspect]
     Active Substance: GOLIMUMAB
     Indication: PSORIATIC ARTHROPATHY
     Dosage: START DATE: APPROX. APR-2017?STOP DATE: APPROX. DEC-2017
     Route: 058
     Dates: start: 2017, end: 2017

REACTIONS (4)
  - Contusion [Recovered/Resolved]
  - Psoriatic arthropathy [Unknown]
  - Aortic dilatation [Unknown]
  - Skin discolouration [Recovered/Resolved]

NARRATIVE: CASE EVENT DATE: 2017
